FAERS Safety Report 17745638 (Version 19)
Quarter: 2025Q4

REPORT INFORMATION
  Report Type: Spontaneous
  Country: CA (occurrence: CA)
  Receive Date: 20200505
  Receipt Date: 20251230
  Transmission Date: 20260118
  Serious: Yes (Hospitalization, Other)
  Sender: BAUSCH AND LOMB
  Company Number: CA-BAUSCH-BL-2020-012594

PATIENT
  Age: 52 Year
  Sex: Female

DRUGS (195)
  1. BUDESONIDE [Suspect]
     Active Substance: BUDESONIDE
     Indication: Product used for unknown indication
     Route: 065
  2. ALBUTEROL [Suspect]
     Active Substance: ALBUTEROL
     Indication: Product used for unknown indication
     Route: 065
  3. ALBUTEROL [Suspect]
     Active Substance: ALBUTEROL
     Route: 065
  4. ALBUTEROL [Suspect]
     Active Substance: ALBUTEROL
     Dosage: DOSAGE FORM: NOT SPECIFIED
     Route: 065
  5. ALBUTEROL [Suspect]
     Active Substance: ALBUTEROL
     Dosage: DOSAGE FORM: NOT SPECIFIED
     Route: 065
  6. DIAZEPAM [Suspect]
     Active Substance: DIAZEPAM
     Indication: Depression
     Route: 065
  7. DIAZEPAM [Suspect]
     Active Substance: DIAZEPAM
     Route: 065
  8. DIAZEPAM [Suspect]
     Active Substance: DIAZEPAM
     Route: 065
  9. ACETAMINOPHEN [Suspect]
     Active Substance: ACETAMINOPHEN
     Indication: Pain in extremity
     Route: 048
  10. ACETAMINOPHEN [Suspect]
     Active Substance: ACETAMINOPHEN
     Route: 065
  11. ACETAMINOPHEN [Suspect]
     Active Substance: ACETAMINOPHEN
     Route: 048
  12. ACETAMINOPHEN [Suspect]
     Active Substance: ACETAMINOPHEN
     Dosage: NOT SPECIFIED
     Route: 048
  13. ACETAMINOPHEN [Suspect]
     Active Substance: ACETAMINOPHEN
     Dosage: TABLET (EXTENDEDRELEASE)
     Route: 048
  14. ACETAMINOPHEN [Suspect]
     Active Substance: ACETAMINOPHEN
     Dosage: NOT SPECIFIED
     Route: 065
  15. ACETAMINOPHEN [Suspect]
     Active Substance: ACETAMINOPHEN
     Dosage: DOSAGE FORM: NOT SPECIFIED, 2 ADMINISTRATIONS
     Route: 065
  16. ACETAMINOPHEN [Suspect]
     Active Substance: ACETAMINOPHEN
     Dosage: DOSAGE FORM: NOT SPECIFIED
     Route: 048
  17. ACETAMINOPHEN [Suspect]
     Active Substance: ACETAMINOPHEN
     Route: 048
  18. APTIVUS [Suspect]
     Active Substance: TIPRANAVIR
     Indication: HIV infection
     Route: 048
  19. APTIVUS [Suspect]
     Active Substance: TIPRANAVIR
     Route: 048
  20. APTIVUS [Suspect]
     Active Substance: TIPRANAVIR
     Route: 065
  21. CLONAZEPAM [Suspect]
     Active Substance: CLONAZEPAM
     Indication: Hypomania
     Route: 048
  22. CLONAZEPAM [Suspect]
     Active Substance: CLONAZEPAM
     Route: 048
  23. CLONAZEPAM [Suspect]
     Active Substance: CLONAZEPAM
     Route: 065
  24. CLONAZEPAM [Suspect]
     Active Substance: CLONAZEPAM
     Route: 065
  25. CLONAZEPAM [Suspect]
     Active Substance: CLONAZEPAM
     Route: 065
  26. OLANZAPINE [Suspect]
     Active Substance: OLANZAPINE
     Indication: Psychotic disorder
     Route: 065
  27. OLANZAPINE [Suspect]
     Active Substance: OLANZAPINE
     Indication: Musculoskeletal stiffness
     Route: 065
  28. OLANZAPINE [Suspect]
     Active Substance: OLANZAPINE
     Route: 065
  29. OLANZAPINE [Suspect]
     Active Substance: OLANZAPINE
     Route: 065
  30. OLANZAPINE [Suspect]
     Active Substance: OLANZAPINE
     Route: 048
  31. OLANZAPINE [Suspect]
     Active Substance: OLANZAPINE
     Dosage: DOSAGE FORM: NOT SPECIFIED
     Route: 065
  32. OLANZAPINE [Suspect]
     Active Substance: OLANZAPINE
     Dosage: DOSAGE FORM: NOT SPECIFIED
     Route: 065
  33. OLANZAPINE [Suspect]
     Active Substance: OLANZAPINE
     Dosage: NOT SPECIFIED
     Route: 065
  34. OLANZAPINE [Suspect]
     Active Substance: OLANZAPINE
     Dosage: SANDOZ OLANZAPINE
     Route: 065
  35. OLANZAPINE [Suspect]
     Active Substance: OLANZAPINE
     Dosage: SANDOZ OLANZAPINE
     Route: 048
  36. OLANZAPINE [Suspect]
     Active Substance: OLANZAPINE
     Route: 065
  37. OLANZAPINE [Suspect]
     Active Substance: OLANZAPINE
     Route: 065
  38. OLANZAPINE [Suspect]
     Active Substance: OLANZAPINE
     Route: 048
  39. OLANZAPINE [Suspect]
     Active Substance: OLANZAPINE
     Route: 065
  40. OLANZAPINE [Suspect]
     Active Substance: OLANZAPINE
     Route: 065
  41. OLANZAPINE [Suspect]
     Active Substance: OLANZAPINE
     Route: 065
  42. PROCYCLIDINE HYDROCHLORIDE [Suspect]
     Active Substance: PROCYCLIDINE HYDROCHLORIDE
     Indication: Prophylaxis
     Route: 048
  43. PROCYCLIDINE HYDROCHLORIDE [Suspect]
     Active Substance: PROCYCLIDINE HYDROCHLORIDE
     Indication: Musculoskeletal stiffness
     Dosage: PROCYCLIDINE HYDROCHLORIDE
     Route: 048
  44. PROCYCLIDINE HYDROCHLORIDE [Suspect]
     Active Substance: PROCYCLIDINE HYDROCHLORIDE
     Dosage: PROCYCLIDINE HYDROCHLORIDE
     Route: 048
  45. PROCYCLIDINE HYDROCHLORIDE [Suspect]
     Active Substance: PROCYCLIDINE HYDROCHLORIDE
     Dosage: PROCYCLIDINE HYDROCHLORIDE
     Route: 065
  46. PROCYCLIDINE HYDROCHLORIDE [Suspect]
     Active Substance: PROCYCLIDINE HYDROCHLORIDE
     Dosage: DOSAGE FORM: NOT SPECIFIED, 2 ADMINISTRATIONS
     Route: 048
  47. QUETIAPINE FUMARATE [Suspect]
     Active Substance: QUETIAPINE FUMARATE
     Indication: Psychotic disorder
     Route: 048
  48. QUETIAPINE FUMARATE [Suspect]
     Active Substance: QUETIAPINE FUMARATE
     Route: 048
  49. QUETIAPINE FUMARATE [Suspect]
     Active Substance: QUETIAPINE FUMARATE
     Route: 048
  50. QUETIAPINE FUMARATE [Suspect]
     Active Substance: QUETIAPINE FUMARATE
     Route: 065
  51. QUETIAPINE FUMARATE [Suspect]
     Active Substance: QUETIAPINE FUMARATE
     Dosage: QUETIAPINE, 3 ADMINISTRATIONS
     Route: 048
  52. QUETIAPINE FUMARATE [Suspect]
     Active Substance: QUETIAPINE FUMARATE
     Route: 065
  53. QUETIAPINE FUMARATE [Suspect]
     Active Substance: QUETIAPINE FUMARATE
     Dosage: ACH-QUETIAPINE
     Route: 048
  54. RISPERIDONE [Suspect]
     Active Substance: RISPERIDONE
     Indication: Psychotic disorder
     Route: 048
  55. RISPERIDONE [Suspect]
     Active Substance: RISPERIDONE
     Route: 048
  56. RISPERIDONE [Suspect]
     Active Substance: RISPERIDONE
     Dosage: DOSAGE FORM: NOT SPECIFIED
     Route: 048
  57. RISPERIDONE [Suspect]
     Active Substance: RISPERIDONE
     Dosage: SANDOZ RISPERIDONE
     Route: 048
  58. TEGRETOL [Suspect]
     Active Substance: CARBAMAZEPINE
     Indication: Hypomania
     Route: 065
  59. TEGRETOL [Suspect]
     Active Substance: CARBAMAZEPINE
     Route: 048
  60. TEGRETOL [Suspect]
     Active Substance: CARBAMAZEPINE
     Route: 048
  61. TEGRETOL [Suspect]
     Active Substance: CARBAMAZEPINE
     Route: 048
  62. TEGRETOL [Suspect]
     Active Substance: CARBAMAZEPINE
     Route: 065
  63. TEGRETOL [Suspect]
     Active Substance: CARBAMAZEPINE
     Dosage: DOSAGE FORM: NOT SPECIFIED
     Route: 048
  64. TEGRETOL [Suspect]
     Active Substance: CARBAMAZEPINE
     Dosage: DOSAGE FORM: NOT SPECIFIED
     Route: 065
  65. TEGRETOL [Suspect]
     Active Substance: CARBAMAZEPINE
     Dosage: 2 EVERY 1 DAY, DOSAGE FORM: NOT SPECIFIED
     Route: 048
  66. TEGRETOL [Suspect]
     Active Substance: CARBAMAZEPINE
     Dosage: DOSAGE FORM: NOT SPECIFIED
     Route: 065
  67. TEGRETOL [Suspect]
     Active Substance: CARBAMAZEPINE
     Dosage: DOSAGE FORM: NOT SPECIFIED
     Route: 048
  68. TRAZODONE [Suspect]
     Active Substance: TRAZODONE HYDROCHLORIDE
     Indication: Depression
     Route: 048
  69. TRAZODONE [Suspect]
     Active Substance: TRAZODONE HYDROCHLORIDE
     Indication: Hypomania
     Dosage: 3 ADMINISTRATIONS
     Route: 048
  70. TRAZODONE [Suspect]
     Active Substance: TRAZODONE HYDROCHLORIDE
     Route: 065
  71. TRAZODONE [Suspect]
     Active Substance: TRAZODONE HYDROCHLORIDE
     Route: 065
  72. TRAZODONE [Suspect]
     Active Substance: TRAZODONE HYDROCHLORIDE
     Route: 048
  73. TRAZODONE [Suspect]
     Active Substance: TRAZODONE HYDROCHLORIDE
     Route: 065
  74. TRAZODONE [Suspect]
     Active Substance: TRAZODONE HYDROCHLORIDE
     Route: 048
  75. TRAZODONE [Suspect]
     Active Substance: TRAZODONE HYDROCHLORIDE
     Route: 048
  76. TRAZODONE [Suspect]
     Active Substance: TRAZODONE HYDROCHLORIDE
     Route: 048
  77. TRAZODONE [Suspect]
     Active Substance: TRAZODONE HYDROCHLORIDE
     Dosage: 3 ADMINISTRATIONS
     Route: 065
  78. ZYPREXA [Suspect]
     Active Substance: OLANZAPINE
     Indication: Psychotic disorder
     Route: 048
  79. ZYPREXA [Suspect]
     Active Substance: OLANZAPINE
     Indication: Musculoskeletal stiffness
     Route: 048
  80. ZYPREXA [Suspect]
     Active Substance: OLANZAPINE
     Route: 048
  81. ZYPREXA [Suspect]
     Active Substance: OLANZAPINE
     Route: 048
  82. ZYPREXA [Suspect]
     Active Substance: OLANZAPINE
     Route: 065
  83. DIVALPROEX SODIUM [Suspect]
     Active Substance: DIVALPROEX SODIUM
     Indication: Product used for unknown indication
     Route: 048
  84. DIVALPROEX SODIUM [Suspect]
     Active Substance: DIVALPROEX SODIUM
     Route: 065
  85. DIVALPROEX SODIUM [Suspect]
     Active Substance: DIVALPROEX SODIUM
     Route: 065
  86. DIVALPROEX SODIUM [Suspect]
     Active Substance: DIVALPROEX SODIUM
     Route: 065
  87. DIVALPROEX SODIUM [Suspect]
     Active Substance: DIVALPROEX SODIUM
     Route: 065
  88. DIVALPROEX SODIUM [Suspect]
     Active Substance: DIVALPROEX SODIUM
     Route: 065
  89. DIVALPROEX SODIUM [Suspect]
     Active Substance: DIVALPROEX SODIUM
     Route: 065
  90. DIVALPROEX SODIUM [Suspect]
     Active Substance: DIVALPROEX SODIUM
     Route: 065
  91. DIVALPROEX SODIUM [Suspect]
     Active Substance: DIVALPROEX SODIUM
     Route: 065
  92. DIVALPROEX SODIUM [Suspect]
     Active Substance: DIVALPROEX SODIUM
     Route: 065
  93. DIVALPROEX SODIUM [Suspect]
     Active Substance: DIVALPROEX SODIUM
     Route: 048
  94. DIVALPROEX SODIUM [Suspect]
     Active Substance: DIVALPROEX SODIUM
     Route: 048
  95. DIVALPROEX SODIUM [Suspect]
     Active Substance: DIVALPROEX SODIUM
     Dosage: DOSAGE FORM: NOT SPECIFIED
     Route: 065
  96. DIVALPROEX SODIUM [Suspect]
     Active Substance: DIVALPROEX SODIUM
     Dosage: DOSAGE FORM: NOT SPECIFIED
     Route: 065
  97. DIVALPROEX SODIUM [Suspect]
     Active Substance: DIVALPROEX SODIUM
     Dosage: DOSAGE FORM: NOT SPECIFIED
     Route: 048
  98. DIVALPROEX SODIUM [Suspect]
     Active Substance: DIVALPROEX SODIUM
     Dosage: DOSAGE FORM: NOT SPECIFIED
     Route: 048
  99. DIVALPROEX SODIUM [Suspect]
     Active Substance: DIVALPROEX SODIUM
     Route: 048
  100. DIVALPROEX SODIUM [Suspect]
     Active Substance: DIVALPROEX SODIUM
     Dosage: DOSAGE FORM: NOT SPECIFIED
     Route: 065
  101. DIVALPROEX SODIUM [Suspect]
     Active Substance: DIVALPROEX SODIUM
     Route: 065
  102. DIVALPROEX SODIUM [Suspect]
     Active Substance: DIVALPROEX SODIUM
     Route: 048
  103. DIVALPROEX SODIUM [Suspect]
     Active Substance: DIVALPROEX SODIUM
     Route: 048
  104. ACETAMINOPHEN\DIPHENHYDRAMINE HYDROCHLORIDE [Suspect]
     Active Substance: ACETAMINOPHEN\DIPHENHYDRAMINE HYDROCHLORIDE
     Indication: Product used for unknown indication
     Dosage: ACETAMINOPHEN/DIPHENHYDRAMINE/PHENYLPROPANOLAMINE HYDROCHLORIDE
     Route: 065
  105. ACETAMINOPHEN\DIPHENHYDRAMINE HYDROCHLORIDE [Suspect]
     Active Substance: ACETAMINOPHEN\DIPHENHYDRAMINE HYDROCHLORIDE
     Route: 065
  106. TIPRANAVIR [Suspect]
     Active Substance: TIPRANAVIR
     Indication: Product used for unknown indication
     Route: 048
  107. TIPRANAVIR [Suspect]
     Active Substance: TIPRANAVIR
     Dosage: DOSAGE FORM: NOT SPECIFIED
     Route: 048
  108. ATROVENT [Suspect]
     Active Substance: IPRATROPIUM BROMIDE
     Indication: Product used for unknown indication
     Route: 065
  109. ATROVENT [Suspect]
     Active Substance: IPRATROPIUM BROMIDE
     Dosage: DOSAGE FORM: NOT SPECIFIED
     Route: 065
  110. ACLIDINIUM BROMIDE\FORMOTEROL FUMARATE [Suspect]
     Active Substance: ACLIDINIUM BROMIDE\FORMOTEROL FUMARATE
     Indication: Product used for unknown indication
     Dosage: 2 ADMINISTRATIONS
     Route: 065
  111. ACLIDINIUM BROMIDE [Suspect]
     Active Substance: ACLIDINIUM BROMIDE
     Indication: Chronic obstructive pulmonary disease
     Route: 065
  112. AZITHROMYCIN [Suspect]
     Active Substance: AZITHROMYCIN
     Indication: Product used for unknown indication
     Route: 065
  113. AZITHROMYCIN [Suspect]
     Active Substance: AZITHROMYCIN
     Dosage: DOSAGE FORM: NOT SPECIFIED
     Route: 065
  114. AZITHROMYCIN [Suspect]
     Active Substance: AZITHROMYCIN
     Dosage: PMS-AZITHROMYCIN
     Route: 065
  115. AZITHROMYCIN [Suspect]
     Active Substance: AZITHROMYCIN
     Dosage: SANDOZ AZITHROMYCIN
     Route: 065
  116. AZITHROMYCIN [Suspect]
     Active Substance: AZITHROMYCIN
     Dosage: SANDOZ AZITHROMYCIN
     Route: 065
  117. AZITHROMYCIN [Suspect]
     Active Substance: AZITHROMYCIN
     Dosage: SANDOZ AZITHROMYCIN
     Route: 065
  118. BREO ELLIPTA [Suspect]
     Active Substance: FLUTICASONE FUROATE\VILANTEROL TRIFENATATE
     Indication: Product used for unknown indication
     Route: 055
  119. BUDESONIDE\FORMOTEROL FUMARATE [Suspect]
     Active Substance: BUDESONIDE\FORMOTEROL FUMARATE
     Indication: Product used for unknown indication
     Route: 065
  120. BUDESONIDE\FORMOTEROL FUMARATE [Suspect]
     Active Substance: BUDESONIDE\FORMOTEROL FUMARATE
     Dosage: DOSAGE FORM: POWDER
  121. BUDESONIDE\FORMOTEROL FUMARATE [Suspect]
     Active Substance: BUDESONIDE\FORMOTEROL FUMARATE
     Dosage: DOSAGE FORM: NOT SPECIFIED
     Route: 065
  122. CIPROFLOXACIN HYDROCHLORIDE [Suspect]
     Active Substance: CIPROFLOXACIN HYDROCHLORIDE
     Indication: Product used for unknown indication
     Route: 065
  123. GLYCOPYRROLATE [Suspect]
     Active Substance: GLYCOPYRROLATE
     Indication: Product used for unknown indication
     Route: 065
  124. MEPOLIZUMAB [Suspect]
     Active Substance: MEPOLIZUMAB
     Indication: Product used for unknown indication
     Route: 065
  125. MEPOLIZUMAB [Suspect]
     Active Substance: MEPOLIZUMAB
     Route: 065
  126. MOXIFLOXACIN HYDROCHLORIDE [Suspect]
     Active Substance: MOXIFLOXACIN HYDROCHLORIDE
     Indication: Product used for unknown indication
     Route: 065
  127. MOXIFLOXACIN HYDROCHLORIDE [Suspect]
     Active Substance: MOXIFLOXACIN HYDROCHLORIDE
     Dosage: DOSAGE FORM: NOT SPECIFIED
     Route: 065
  128. MOXIFLOXACIN HYDROCHLORIDE [Suspect]
     Active Substance: MOXIFLOXACIN HYDROCHLORIDE
     Dosage: MOXIFLOXACIN HYDROCHLORIDE
     Route: 065
  129. MOXIFLOXACIN HYDROCHLORIDE [Suspect]
     Active Substance: MOXIFLOXACIN HYDROCHLORIDE
     Dosage: MOXIFLOXACIN
     Route: 048
  130. MOXIFLOXACIN HYDROCHLORIDE [Suspect]
     Active Substance: MOXIFLOXACIN HYDROCHLORIDE
     Dosage: SANDOZ MOXIFLOXACIN
     Route: 047
  131. NASONEX [Suspect]
     Active Substance: MOMETASONE FUROATE
     Indication: Product used for unknown indication
     Dosage: SPRAY, METERED DOSE, INTRA-NASAL
     Route: 065
  132. NASONEX [Suspect]
     Active Substance: MOMETASONE FUROATE
     Dosage: SPRAY, METERED DOSE
     Route: 065
  133. OLODATEROL HYDROCHLORIDE\TIOTROPIUM BROMIDE MONOHYDRATE [Suspect]
     Active Substance: OLODATEROL HYDROCHLORIDE\TIOTROPIUM BROMIDE MONOHYDRATE
     Indication: Product used for unknown indication
     Dosage: 2 ADMINISTRATIONS
     Route: 065
  134. OMNARIS [Suspect]
     Active Substance: CICLESONIDE
     Indication: Product used for unknown indication
     Dosage: SPRAY, METERED DOSE, INTRA-NASAL
     Route: 065
  135. OMNARIS [Suspect]
     Active Substance: CICLESONIDE
     Dosage: SPRAY, METERED DOSE
     Route: 065
  136. PREDNISONE [Suspect]
     Active Substance: PREDNISONE
     Indication: Product used for unknown indication
     Route: 065
  137. PREDNISONE [Suspect]
     Active Substance: PREDNISONE
     Dosage: DOSAGE FORM: NOT SPECIFIED
     Route: 065
  138. SINGULAIR [Suspect]
     Active Substance: MONTELUKAST SODIUM
     Indication: Product used for unknown indication
     Route: 065
  139. SINGULAIR [Suspect]
     Active Substance: MONTELUKAST SODIUM
     Dosage: DOSAGE FORM: NOT SPECIFIED
     Route: 065
  140. SPIRIVA [Suspect]
     Active Substance: TIOTROPIUM BROMIDE MONOHYDRATE
     Indication: Product used for unknown indication
     Route: 065
  141. SPIRIVA [Suspect]
     Active Substance: TIOTROPIUM BROMIDE MONOHYDRATE
     Dosage: DOSAGE FORM: NOT SPECIFIED
     Route: 065
  142. GLYCOPYRRONIUM\INDACATEROL [Suspect]
     Active Substance: GLYCOPYRRONIUM\INDACATEROL
     Indication: Depression
     Route: 065
  143. GLYCOPYRRONIUM\INDACATEROL [Suspect]
     Active Substance: GLYCOPYRRONIUM\INDACATEROL
     Route: 048
  144. GLYCOPYRRONIUM\INDACATEROL [Suspect]
     Active Substance: GLYCOPYRRONIUM\INDACATEROL
     Route: 048
  145. UMECLIDINIUM BROMIDE [Suspect]
     Active Substance: UMECLIDINIUM BROMIDE
     Indication: Product used for unknown indication
     Route: 065
  146. ZENHALE [Suspect]
     Active Substance: FORMOTEROL FUMARATE\MOMETASONE FUROATE
     Indication: Product used for unknown indication
     Dosage: AEROSOL, METERED DOSE, 2 ADMINISTRATIONS
     Route: 065
  147. ANORO ELLIPTA [Suspect]
     Active Substance: UMECLIDINIUM BROMIDE\VILANTEROL TRIFENATATE
     Indication: Product used for unknown indication
     Dosage: POWDER FOR ORAL INHALATION
     Route: 065
  148. ANORO ELLIPTA [Suspect]
     Active Substance: UMECLIDINIUM BROMIDE\VILANTEROL TRIFENATATE
     Dosage: POWDER FOR ORAL INHALATION
     Route: 048
  149. ACLIDINIUM BROMIDE\FORMOTEROL FUMARATE [Suspect]
     Active Substance: ACLIDINIUM BROMIDE\FORMOTEROL FUMARATE
     Indication: Product used for unknown indication
     Dosage: POWDER, METERED DOSE, ORAL INHALATION. 1 INHALER WITH 30 ACTUATIONS + 1 INHALER WITH 60 ACTUATIONS
     Route: 065
  150. EPIVAL [Suspect]
     Active Substance: DIVALPROEX SODIUM
     Indication: Product used for unknown indication
     Route: 065
  151. EPIVAL [Suspect]
     Active Substance: DIVALPROEX SODIUM
     Route: 048
  152. EPIVAL [Suspect]
     Active Substance: DIVALPROEX SODIUM
     Route: 048
  153. EPIVAL [Suspect]
     Active Substance: DIVALPROEX SODIUM
     Route: 048
  154. EPIVAL [Suspect]
     Active Substance: DIVALPROEX SODIUM
     Route: 048
  155. FORMOTEROL FUMARATE\MOMETASONE FUROATE [Suspect]
     Active Substance: FORMOTEROL FUMARATE\MOMETASONE FUROATE
     Indication: Product used for unknown indication
     Dosage: AEROSOL, METERED DOSE
     Route: 065
  156. OLODATEROL HYDROCHLORIDE\TIOTROPIUM BROMIDE MONOHYDRATE [Suspect]
     Active Substance: OLODATEROL HYDROCHLORIDE\TIOTROPIUM BROMIDE MONOHYDRATE
     Indication: Product used for unknown indication
     Dosage: SOLUTION INHALATION, ORAL INHALATION WITH INSPIOLTO RESPIMAT INHALER
  157. NUCALA [Suspect]
     Active Substance: MEPOLIZUMAB
     Indication: Product used for unknown indication
     Route: 048
  158. NUCALA [Suspect]
     Active Substance: MEPOLIZUMAB
     Route: 065
  159. NUCALA [Suspect]
     Active Substance: MEPOLIZUMAB
     Route: 058
  160. SEROQUEL [Suspect]
     Active Substance: QUETIAPINE FUMARATE
     Indication: Product used for unknown indication
     Route: 048
  161. SEROQUEL [Suspect]
     Active Substance: QUETIAPINE FUMARATE
     Route: 048
  162. TIOTROPIUM BROMIDE MONOHYDRATE [Suspect]
     Active Substance: TIOTROPIUM BROMIDE MONOHYDRATE
     Indication: Product used for unknown indication
     Route: 065
  163. TIOTROPIUM BROMIDE MONOHYDRATE [Suspect]
     Active Substance: TIOTROPIUM BROMIDE MONOHYDRATE
     Dosage: DOSAGE FORM: NOT SPECIFIED
     Route: 065
  164. UMECLIDINIUM BROMIDE\VILANTEROL TRIFENATATE [Suspect]
     Active Substance: UMECLIDINIUM BROMIDE\VILANTEROL TRIFENATATE
     Indication: Product used for unknown indication
     Route: 065
  165. UMECLIDINIUM BROMIDE\VILANTEROL TRIFENATATE [Suspect]
     Active Substance: UMECLIDINIUM BROMIDE\VILANTEROL TRIFENATATE
     Route: 065
  166. UMECLIDINIUM BROMIDE\VILANTEROL TRIFENATATE [Suspect]
     Active Substance: UMECLIDINIUM BROMIDE\VILANTEROL TRIFENATATE
     Route: 048
  167. MOXIFLOXACIN\PREDNISOLONE ACETATE [Suspect]
     Active Substance: MOXIFLOXACIN\PREDNISOLONE ACETATE
     Indication: Product used for unknown indication
     Route: 065
  168. AZITHROMYCIN ANHYDROUS [Suspect]
     Active Substance: AZITHROMYCIN ANHYDROUS
     Indication: Product used for unknown indication
     Route: 065
  169. AZITHROMYCIN ANHYDROUS [Suspect]
     Active Substance: AZITHROMYCIN ANHYDROUS
     Dosage: DOSAGE FORM: NOT SPECIFIED
     Route: 065
  170. DIPHENHYDRAMINE [Suspect]
     Active Substance: DIPHENHYDRAMINE
     Indication: Product used for unknown indication
     Route: 065
  171. FLUTICASONE [Suspect]
     Active Substance: FLUTICASONE
     Indication: Product used for unknown indication
     Route: 065
  172. FORMOTEROL [Suspect]
     Active Substance: FORMOTEROL
     Indication: Product used for unknown indication
     Route: 065
  173. VALPROATE [Suspect]
     Active Substance: VALPROIC ACID
     Indication: Product used for unknown indication
     Route: 065
  174. DIAZEPAM [Suspect]
     Active Substance: DIAZEPAM
     Indication: Depression
     Route: 048
  175. DIAZEPAM [Suspect]
     Active Substance: DIAZEPAM
     Route: 048
  176. DIAZEPAM [Suspect]
     Active Substance: DIAZEPAM
     Route: 048
  177. DIAZEPAM [Suspect]
     Active Substance: DIAZEPAM
     Route: 065
  178. DIAZEPAM [Suspect]
     Active Substance: DIAZEPAM
     Route: 048
  179. DIAZEPAM [Suspect]
     Active Substance: DIAZEPAM
     Route: 048
  180. DIAZEPAM [Suspect]
     Active Substance: DIAZEPAM
     Route: 048
  181. DIAZEPAM [Suspect]
     Active Substance: DIAZEPAM
     Dosage: DOSAGE FORM: NOT SPECIFIED
     Route: 048
  182. DIAZEPAM [Suspect]
     Active Substance: DIAZEPAM
     Route: 048
  183. DIAZEPAM [Suspect]
     Active Substance: DIAZEPAM
     Dosage: 2 EVERY 1 DAYS
     Route: 048
  184. DIAZEPAM [Suspect]
     Active Substance: DIAZEPAM
     Dosage: DOSAGE FORM: NOT SPECIFIED
     Route: 048
  185. DIAZEPAM [Suspect]
     Active Substance: DIAZEPAM
     Dosage: DOSAGE FORM: NOT SPECIFIED
     Route: 048
  186. DIAZEPAM [Suspect]
     Active Substance: DIAZEPAM
     Route: 048
  187. RIVOTRIL [Suspect]
     Active Substance: CLONAZEPAM
     Indication: Product used for unknown indication
     Route: 065
  188. RIVOTRIL [Suspect]
     Active Substance: CLONAZEPAM
     Route: 048
  189. NYSTATIN [Suspect]
     Active Substance: NYSTATIN
     Indication: Pain in extremity
     Dosage: DOSAGE FORM: NOT SPECIFIED
     Route: 065
  190. NYSTATIN [Suspect]
     Active Substance: NYSTATIN
     Dosage: DOSAGE FORM: NOT SPECIFIED
     Route: 048
  191. AMMONIUM CHLORIDE\DIPHENHYDRAMINE HYDROCHLORIDE\SODIUM CITRATE [Suspect]
     Active Substance: AMMONIUM CHLORIDE\DIPHENHYDRAMINE HYDROCHLORIDE\SODIUM CITRATE
     Indication: Product used for unknown indication
     Route: 065
  192. FORMOTEROL FUMARATE [Suspect]
     Active Substance: FORMOTEROL FUMARATE
     Indication: Product used for unknown indication
     Route: 065
  193. DEPAKOTE [Suspect]
     Active Substance: DIVALPROEX SODIUM
     Indication: Product used for unknown indication
     Dosage: PROCYCLIDINE HYDROCHLORIDE
     Route: 048
  194. DEPAKOTE [Suspect]
     Active Substance: DIVALPROEX SODIUM
     Route: 048
  195. ACLIDINIUM BROMIDE [Suspect]
     Active Substance: ACLIDINIUM BROMIDE
     Indication: Chronic obstructive pulmonary disease
     Dosage: 1 INHALER WITH 30 ACTUATIONS + 1 INHALER WITH 60 ACTUATIONS
     Route: 065

REACTIONS (28)
  - Blood bilirubin increased [Recovered/Resolved]
  - Cholelithiasis [Recovered/Resolved]
  - Condition aggravated [Recovered/Resolved]
  - Hepatic enzyme increased [Recovered/Resolved]
  - Hepatotoxicity [Recovered/Resolved]
  - Hypomania [Recovered/Resolved]
  - Jaundice cholestatic [Recovered/Resolved]
  - Nausea [Recovered/Resolved]
  - Pneumonia [Recovered/Resolved]
  - Psychotic disorder [Recovered/Resolved]
  - Schizophrenia [Recovered/Resolved]
  - Vomiting [Recovered/Resolved]
  - Asthma-chronic obstructive pulmonary disease overlap syndrome [Recovered/Resolved]
  - Bronchiectasis [Recovered/Resolved]
  - Cardiac murmur [Recovered/Resolved]
  - Chronic obstructive pulmonary disease [Recovered/Resolved]
  - Gastrooesophageal reflux disease [Recovered/Resolved]
  - Lung neoplasm malignant [Recovered/Resolved]
  - Nasal polyps [Recovered/Resolved]
  - Sarcoidosis [Recovered/Resolved]
  - Total lung capacity increased [Recovered/Resolved]
  - Wheezing [Recovered/Resolved]
  - Oedema peripheral [Recovered/Resolved]
  - Rhinitis allergic [Recovered/Resolved]
  - Pain in extremity [Unknown]
  - Lung neoplasm [Recovered/Resolved]
  - Product use in unapproved indication [Unknown]
  - Off label use [Unknown]
